FAERS Safety Report 17229991 (Version 1)
Quarter: 2020Q1

REPORT INFORMATION
  Report Type: Spontaneous
  Country: GB (occurrence: GB)
  Receive Date: 20200103
  Receipt Date: 20200103
  Transmission Date: 20200409
  Serious: Yes (Other)
  Sender: FDA-Public Use
  Company Number: GB-MYLANLABS-2019M1128958

PATIENT
  Sex: Male
  Weight: 133.3 kg

DRUGS (12)
  1. PROPRANOLOL [Concomitant]
     Active Substance: PROPRANOLOL HYDROCHLORIDE
     Indication: TACHYCARDIA
     Dosage: 20 MILLIGRAM, TDS
     Route: 048
     Dates: start: 20191010, end: 2019
  2. ATENOLOL. [Concomitant]
     Active Substance: ATENOLOL
     Indication: TACHYCARDIA
     Dosage: UNK
     Route: 048
     Dates: start: 20191010, end: 2019
  3. SERTRALINE [Concomitant]
     Active Substance: SERTRALINE HYDROCHLORIDE
     Indication: BIPOLAR DISORDER
     Dosage: 50 MILLIGRAM, QD
     Route: 048
     Dates: start: 20191014
  4. CLOZARIL [Suspect]
     Active Substance: CLOZAPINE
     Indication: PERSONALITY DISORDER
     Dosage: 400 MILLIGRAM, QD
     Route: 048
     Dates: start: 20191016
  5. ATORVASTATIN [Concomitant]
     Active Substance: ATORVASTATIN
     Indication: HYPERLIPIDAEMIA
     Dosage: 10 MILLIGRAM, NOCTE
     Route: 048
     Dates: start: 20191025
  6. CLOZARIL [Suspect]
     Active Substance: CLOZAPINE
     Indication: SCHIZOPHRENIA
     Dosage: 100 MILLIGRAM, MANE
     Route: 048
     Dates: start: 20120905, end: 20191219
  7. COLECALCIFEROL [Concomitant]
     Active Substance: CHOLECALCIFEROL
     Indication: VITAMIN D DEFICIENCY
     Dosage: 800 INTERNATIONAL UNIT, QD, MANE
     Route: 048
     Dates: start: 20190930
  8. CLOZARIL [Suspect]
     Active Substance: CLOZAPINE
     Indication: BIPOLAR DISORDER
     Dosage: 300 MILLIGRAM, TEATIME
     Route: 048
     Dates: start: 20120905, end: 20191219
  9. PARACETAMOL [Concomitant]
     Active Substance: ACETAMINOPHEN
     Dosage: 1000 MILLIGRAM TDS X 3/7
     Route: 048
     Dates: start: 20191217, end: 20191220
  10. FERROUS FUMARATE [Concomitant]
     Active Substance: FERROUS FUMARATE
     Indication: MICROCYTIC ANAEMIA
     Dosage: 210 MILLIGRAM, QD
     Route: 048
     Dates: start: 20190930
  11. METFORMIN [Concomitant]
     Active Substance: METFORMIN HYDROCHLORIDE
     Indication: OBESITY
     Dosage: 500 MILLIGRAM, TDS
     Route: 048
     Dates: start: 20191009
  12. METFORMIN [Concomitant]
     Active Substance: METFORMIN HYDROCHLORIDE
     Indication: HYPERGLYCAEMIA

REACTIONS (3)
  - Hepatic enzyme increased [Recovering/Resolving]
  - Upper respiratory tract infection [Recovered/Resolved]
  - Antipsychotic drug level above therapeutic [Unknown]

NARRATIVE: CASE EVENT DATE: 20190926
